FAERS Safety Report 13506388 (Version 1)
Quarter: 2017Q2

REPORT INFORMATION
  Report Type: Spontaneous
  Country: US (occurrence: US)
  Receive Date: 20170502
  Receipt Date: 20170502
  Transmission Date: 20170830
  Serious: No
  Sender: FDA-Public Use
  Company Number: US-ROCHE-1288552

PATIENT
  Age: 85 Year
  Sex: Male

DRUGS (5)
  1. PACLITAXEL. [Concomitant]
     Active Substance: PACLITAXEL
  2. CARBOPLATIN. [Concomitant]
     Active Substance: CARBOPLATIN
  3. DOCETAXEL. [Suspect]
     Active Substance: DOCETAXEL
     Indication: NON-SMALL CELL LUNG CANCER
     Route: 065
  4. AVASTIN [Suspect]
     Active Substance: BEVACIZUMAB
     Indication: NON-SMALL CELL LUNG CANCER
     Route: 065
  5. PEMETREXED. [Concomitant]
     Active Substance: PEMETREXED

REACTIONS (1)
  - Protein urine present [Not Recovered/Not Resolved]
